FAERS Safety Report 7979440-X (Version None)
Quarter: 2011Q4

REPORT INFORMATION
  Report Type: 
  Country: None (occurrence: None)
  Receive Date: 20111214
  Receipt Date: 20111209
  Transmission Date: 20120403
  Serious: Yes (Hospitalization)
  Sender: FDA-Public Use
  Company Number: PHHY2011JP55365

PATIENT
  Age: 74 Year
  Sex: Female
  Weight: 38 kg

DRUGS (7)
  1. COMTAN [Suspect]
     Dosage: 200 MG, UNK
     Route: 048
     Dates: start: 20080101
  2. COMTAN [Suspect]
     Dosage: 300 MG, UNK
     Route: 048
  3. LEVODOPA [Concomitant]
     Dosage: 200 MG, UNK
     Route: 048
  4. LEVODOPA [Concomitant]
     Dosage: 300 MG, UNK
     Route: 048
  5. LEVODOPA [Concomitant]
     Indication: PARKINSON'S DISEASE
     Dosage: 400 MG, UNK
     Route: 048
  6. COMTAN [Suspect]
     Indication: DRUG EFFECT DECREASED
     Dosage: 400 MG, UNK
     Route: 048
     Dates: start: 20000101, end: 20080101
  7. PRAMIPEXOLE DIHYDROCHLORIDE [Concomitant]
     Indication: PARKINSON'S DISEASE
     Dosage: 2.5 MG, UNK
     Route: 048

REACTIONS (5)
  - RED BLOOD CELL COUNT DECREASED [None]
  - WHITE BLOOD CELL COUNT DECREASED [None]
  - DYSKINESIA [None]
  - DYSPNOEA [None]
  - RESPIRATORY FAILURE [None]
